FAERS Safety Report 20289965 (Version 6)
Quarter: 2022Q2

REPORT INFORMATION
  Report Type: Report from Study
  Country: US (occurrence: US)
  Receive Date: 20220104
  Receipt Date: 20220411
  Transmission Date: 20220721
  Serious: Yes (Other)
  Sender: FDA-Public Use
  Company Number: US-NOVARTISPH-NVSC2021US282074

PATIENT
  Age: 75 Year
  Sex: Male
  Weight: 76.2 kg

DRUGS (10)
  1. LAMPRENE [Suspect]
     Active Substance: CLOFAZIMINE
     Indication: Mycobacterium abscessus infection
     Dosage: 100 MG
     Route: 048
     Dates: start: 202110, end: 20211104
  2. LAMPRENE [Suspect]
     Active Substance: CLOFAZIMINE
     Dosage: 100 MG
     Route: 048
     Dates: start: 20211124
  3. LAMPRENE [Suspect]
     Active Substance: CLOFAZIMINE
     Dosage: 100 MG
     Route: 048
     Dates: start: 20211125
  4. AMIKACIN [Concomitant]
     Active Substance: AMIKACIN
     Indication: Product used for unknown indication
     Dosage: 10 MG
     Route: 042
     Dates: start: 20210830, end: 20211104
  5. AMIKACIN [Concomitant]
     Active Substance: AMIKACIN
     Dosage: 10 MG
     Route: 042
     Dates: start: 20211124
  6. AMIKACIN [Concomitant]
     Active Substance: AMIKACIN
     Dosage: 10 MG
     Route: 042
     Dates: start: 20211125
  7. OMADACYCLINE [Concomitant]
     Active Substance: OMADACYCLINE
     Indication: Product used for unknown indication
     Dosage: 150 MG
     Route: 042
     Dates: start: 20210830, end: 20211104
  8. OMADACYCLINE [Concomitant]
     Active Substance: OMADACYCLINE
     Dosage: 150 MG
     Route: 042
     Dates: start: 20211124
  9. OMADACYCLINE [Concomitant]
     Active Substance: OMADACYCLINE
     Dosage: 150 MG
     Route: 042
     Dates: start: 20211125
  10. AUGMENTIN [Concomitant]
     Active Substance: AMOXICILLIN\CLAVULANATE POTASSIUM
     Indication: Product used for unknown indication
     Dosage: 875 MG
     Route: 048
     Dates: start: 20211228

REACTIONS (8)
  - Neuropathy peripheral [Not Recovered/Not Resolved]
  - Squamous cell carcinoma [Not Recovered/Not Resolved]
  - Deafness [Not Recovered/Not Resolved]
  - Blood pressure increased [Not Recovered/Not Resolved]
  - Neck mass [Not Recovered/Not Resolved]
  - Dry mouth [Not Recovered/Not Resolved]
  - Nausea [Not Recovered/Not Resolved]
  - Dyspnoea [Not Recovered/Not Resolved]

NARRATIVE: CASE EVENT DATE: 20211101
